FAERS Safety Report 6230830-5 (Version None)
Quarter: 2009Q2

REPORT INFORMATION
  Report Type: 
  Country: None (occurrence: None)
  Receive Date: 20090616
  Receipt Date: 20090615
  Transmission Date: 20091009
  Serious: Yes (Hospitalization)
  Sender: FDA-Public Use
  Company Number: GB-JNJFOC-20090604665

PATIENT
  Age: 35 Year
  Sex: Female

DRUGS (5)
  1. GRISEOFULVIN [Suspect]
     Route: 048
  2. GRISEOFULVIN [Suspect]
     Indication: ONYCHOMYCOSIS
     Route: 048
  3. PREDNISOLONE [Concomitant]
     Route: 065
  4. PREDNISOLONE [Concomitant]
     Route: 065
  5. PREDNISOLONE [Concomitant]
     Indication: DERMATOMYOSITIS
     Route: 065

REACTIONS (1)
  - CUTANEOUS LUPUS ERYTHEMATOSUS [None]
